FAERS Safety Report 17598026 (Version 7)
Quarter: 2022Q1

REPORT INFORMATION
  Report Type: Spontaneous
  Country: US (occurrence: US)
  Receive Date: 20200330
  Receipt Date: 20220317
  Transmission Date: 20220423
  Serious: Yes (Other)
  Sender: FDA-Public Use
  Company Number: US-PFIZER INC-2020126692

PATIENT
  Age: 69 Year

DRUGS (1)
  1. PRISTIQ EXTENDED-RELEASE [Suspect]
     Active Substance: DESVENLAFAXINE SUCCINATE
     Indication: Depression
     Dosage: 100 MG, UNK

REACTIONS (4)
  - Bipolar disorder [Unknown]
  - Panic disorder [Unknown]
  - Memory impairment [Unknown]
  - Illness [Recovering/Resolving]
